FAERS Safety Report 25729647 (Version 2)
Quarter: 2025Q4

REPORT INFORMATION
  Report Type: Spontaneous
  Country: EU (occurrence: EU)
  Receive Date: 20250827
  Receipt Date: 20251006
  Transmission Date: 20260117
  Serious: Yes (Other)
  Sender: CELLTRION
  Company Number: EU-ROCHE-10000252820

PATIENT

DRUGS (6)
  1. RITUXIMAB [Suspect]
     Active Substance: RITUXIMAB
     Indication: Diffuse large B-cell lymphoma
     Dosage: UNK
     Route: 065
     Dates: start: 20241010
  2. POLIVY [Suspect]
     Active Substance: POLATUZUMAB VEDOTIN-PIIQ
     Indication: Diffuse large B-cell lymphoma
     Dosage: 1.8 MG/KG
     Route: 065
     Dates: start: 20241010
  3. CYCLOPHOSPHAMIDE [Suspect]
     Active Substance: CYCLOPHOSPHAMIDE
     Indication: Diffuse large B-cell lymphoma
     Dosage: UNK
     Route: 065
     Dates: start: 20241010
  4. DOXORUBICIN [Suspect]
     Active Substance: DOXORUBICIN
     Indication: Diffuse large B-cell lymphoma
     Dosage: UNK
     Route: 065
     Dates: start: 20241010
  5. VINCRISTINE [Suspect]
     Active Substance: VINCRISTINE
     Indication: Diffuse large B-cell lymphoma
     Dosage: UNK
     Route: 065
     Dates: start: 20241010
  6. PREDNISONE [Suspect]
     Active Substance: PREDNISONE
     Indication: Diffuse large B-cell lymphoma
     Dosage: 30 MG/KG, QD
     Route: 065
     Dates: start: 20241010

REACTIONS (11)
  - Pneumonitis [Unknown]
  - Compression fracture [Unknown]
  - Osteoporotic fracture [Unknown]
  - Spinal pain [Unknown]
  - Leukocytosis [Unknown]
  - Fall [Unknown]
  - Bone marrow oedema [Unknown]
  - Dysstasia [Unknown]
  - Monoparesis [Unknown]
  - Arthralgia [Unknown]
  - Product use issue [Unknown]

NARRATIVE: CASE EVENT DATE: 20250214
